FAERS Safety Report 10252954 (Version 1)
Quarter: 2014Q2

REPORT INFORMATION
  Report Type: Spontaneous
  Country: US (occurrence: US)
  Receive Date: 20140623
  Receipt Date: 20140623
  Transmission Date: 20141212
  Serious: No
  Sender: FDA-Public Use
  Company Number: US-PFIZER INC-2014172041

PATIENT
  Sex: 0

DRUGS (2)
  1. QUILLIVANT XR [Suspect]
     Indication: PSYCHOMOTOR HYPERACTIVITY
     Dosage: UNK (ONE TEASPOON)
  2. QUILLIVANT XR [Suspect]
     Dosage: UNK (ONE AND A HALF TEASPOON )

REACTIONS (2)
  - Malaise [Unknown]
  - Drug ineffective [Unknown]
